FAERS Safety Report 4922122-9 (Version None)
Quarter: 2006Q1

REPORT INFORMATION
  Report Type: 
  Country: None (occurrence: None)
  Receive Date: 20060222
  Receipt Date: 20060222
  Transmission Date: 20060701
  Serious: Yes (Hospitalization)
  Sender: FDA-Public Use
  Company Number: None

PATIENT
  Age: 73 Year
  Sex: Male
  Weight: 92.8 kg

DRUGS (4)
  1. LITHIUM 300 MG [Suspect]
     Indication: BIPOLAR DISORDER
     Dosage: 300 MG TID PO
     Route: 048
     Dates: start: 20001221, end: 20051121
  2. LITHIUM 300 MG [Suspect]
     Indication: HYPERTENSION
     Dosage: 300 MG TID PO
     Route: 048
     Dates: start: 20001221, end: 20051121
  3. LISINOPRIL [Suspect]
     Indication: HYPERTENSION
     Dosage: 10 MG DAILY PO
     Route: 048
     Dates: start: 20051112
  4. METFORMIN HCL [Suspect]
     Dosage: 500MG BID PO
     Route: 048
     Dates: start: 20051108, end: 20051121

REACTIONS (10)
  - ANTIPSYCHOTIC DRUG LEVEL INCREASED [None]
  - DEHYDRATION [None]
  - DIABETES MELLITUS [None]
  - HYPOTENSION [None]
  - LOSS OF CONSCIOUSNESS [None]
  - MENTAL STATUS CHANGES [None]
  - RENAL FAILURE ACUTE [None]
  - RESPIRATORY DISTRESS [None]
  - SEPSIS [None]
  - SOMNOLENCE [None]
